FAERS Safety Report 6089020-1 (Version None)
Quarter: 2009Q1

REPORT INFORMATION
  Report Type: 
  Country: None (occurrence: None)
  Receive Date: 20090224
  Receipt Date: 20090217
  Transmission Date: 20090719
  Serious: Yes (Other)
  Sender: FDA-Public Use
  Company Number: A0752017A

PATIENT
  Age: 54 Year
  Sex: Female

DRUGS (4)
  1. REQUIP XL [Suspect]
     Indication: PARKINSON'S DISEASE
     Dosage: 16MG PER DAY
     Route: 048
     Dates: start: 20081014, end: 20081015
  2. STALEVO 100 [Concomitant]
     Indication: PARKINSON'S DISEASE
     Route: 048
     Dates: start: 20070416
  3. AZILECT [Concomitant]
     Indication: PARKINSON'S DISEASE
     Dosage: .5MG PER DAY
     Route: 048
     Dates: start: 20070102
  4. ZOLOFT [Concomitant]
     Indication: DEPRESSION
     Dosage: 100MG PER DAY
     Route: 048
     Dates: start: 20061019

REACTIONS (2)
  - DRUG INEFFECTIVE [None]
  - PARKINSON'S DISEASE [None]
